FAERS Safety Report 10408491 (Version 1)
Quarter: 2014Q3

REPORT INFORMATION
  Report Type: Spontaneous
  Country: US (occurrence: None)
  Receive Date: 20140825
  Receipt Date: 20140825
  Transmission Date: 20150326
  Serious: No
  Sender: FDA-Public Use
  Company Number: None

PATIENT
  Age: 40 Year
  Sex: Male
  Weight: 151.96 kg

DRUGS (1)
  1. CHOLESTYRAMINE. [Suspect]
     Active Substance: CHOLESTYRAMINE
     Indication: MALABSORPTION
     Dosage: 4 GM PACKS 2 PACKS BY MOUTH
     Route: 048
     Dates: start: 201312

REACTIONS (3)
  - Diarrhoea [None]
  - Flatulence [None]
  - Product substitution issue [None]

NARRATIVE: CASE EVENT DATE: 201312
